FAERS Safety Report 7888173-X (Version None)
Quarter: 2011Q4

REPORT INFORMATION
  Report Type: 
  Country: None (occurrence: None)
  Receive Date: 20111103
  Receipt Date: 20111024
  Transmission Date: 20120403
  Serious: Yes (Other)
  Sender: FDA-Public Use
  Company Number: ES-SANOFI-AVENTIS-2011SA017995

PATIENT
  Age: 66 Year

DRUGS (5)
  1. ATORVASTATIN [Concomitant]
     Route: 065
  2. DILTIAZEM HYDROCHLORIDE [Concomitant]
     Dosage: DOSE:1 UNIT(S)
     Route: 065
  3. MULTAQ [Suspect]
     Route: 048
     Dates: start: 20110104, end: 20110208
  4. ASPIRIN [Concomitant]
     Dosage: DOSE:1 UNIT(S)
     Route: 065
  5. PANTOPRAZOLE [Concomitant]
     Route: 065

REACTIONS (4)
  - HEPATITIS [None]
  - TRANSAMINASES INCREASED [None]
  - BLOOD ALKALINE PHOSPHATASE INCREASED [None]
  - MIXED LIVER INJURY [None]
